FAERS Safety Report 10047235 (Version 1)
Quarter: 2014Q1

REPORT INFORMATION
  Report Type: Spontaneous
  Country: US (occurrence: US)
  Receive Date: 20140331
  Receipt Date: 20140331
  Transmission Date: 20141002
  Serious: No
  Sender: FDA-Public Use
  Company Number: US-MYLANLABS-2013S1022638

PATIENT
  Sex: Female

DRUGS (11)
  1. FENTANYL TRANSDERMAL SYSTEM [Suspect]
     Indication: OSTEOARTHRITIS
     Dosage: Q48H
     Route: 062
  2. FENTANYL TRANSDERMAL SYSTEM [Suspect]
     Indication: ARTHRALGIA
     Dosage: Q48H
     Route: 062
  3. FENTANYL TRANSDERMAL SYSTEM [Suspect]
     Indication: OSTEOARTHRITIS
     Dosage: Q48H
     Route: 062
     Dates: start: 20130925
  4. FENTANYL TRANSDERMAL SYSTEM [Suspect]
     Indication: ARTHRALGIA
     Dosage: Q48H
     Route: 062
     Dates: start: 20130925
  5. CROMOLYN SODIUM [Concomitant]
  6. BACLOFEN [Concomitant]
  7. CLONAZEPAM [Concomitant]
  8. TAMIFLU [Concomitant]
     Indication: INFLUENZA
  9. AZITHROMYCIN [Concomitant]
  10. OXYCODONE [Concomitant]
  11. SOMA [Concomitant]

REACTIONS (2)
  - Pruritus [Not Recovered/Not Resolved]
  - Formication [Not Recovered/Not Resolved]
